FAERS Safety Report 22821745 (Version 43)
Quarter: 2025Q4

REPORT INFORMATION
  Report Type: Spontaneous
  Country: CA (occurrence: CA)
  Receive Date: 20230814
  Receipt Date: 20251211
  Transmission Date: 20260118
  Serious: Yes (Hospitalization, Other)
  Sender: PFIZER
  Company Number: CA-PFIZER INC-202300200922

PATIENT
  Age: 38 Year
  Sex: Male
  Weight: 74 kg

DRUGS (57)
  1. ABRILADA [Suspect]
     Active Substance: ADALIMUMAB-AFZB
     Indication: Crohn^s disease
     Dosage: 1 DF, WEEK0 160 MG, WEEK2 80 MG + THEN 40 MG WEEKLY
     Route: 058
     Dates: start: 20230628, end: 2023
  2. ABRILADA [Suspect]
     Active Substance: ADALIMUMAB-AFZB
     Dosage: 1 DF, WEEK0 160 MG, WEEK2 80 MG + THEN 40 MG WEEKLY
     Route: 058
     Dates: start: 20230628, end: 2023
  3. ABRILADA [Suspect]
     Active Substance: ADALIMUMAB-AFZB
     Dosage: UNK, WEEK0 160 MG, WEEK2 80 MG + THEN 40 MG WEEKLY
     Route: 058
     Dates: start: 20230809
  4. ABRILADA [Suspect]
     Active Substance: ADALIMUMAB-AFZB
     Dosage: 40 MG, WK0 160 MG, WK2 80 MG THEN 40 MG WKLY STARTING AT WK 3 (1 DF)(W0 160MG, W0 80MG, 40MG Q1 WK)
     Route: 058
     Dates: start: 20230905
  5. ABRILADA [Suspect]
     Active Substance: ADALIMUMAB-AFZB
     Dosage: 160MG WEEK 0, 80MG WEEK 2, THEN 40MG WEEKLY STARTING AT WEEK3
     Route: 058
     Dates: start: 20230911
  6. ABRILADA [Suspect]
     Active Substance: ADALIMUMAB-AFZB
     Dosage: 40 MG, WEEKLY
     Route: 058
     Dates: start: 20230918
  7. ABRILADA [Suspect]
     Active Substance: ADALIMUMAB-AFZB
     Dosage: 160 MG WK 0, 80MG WK2, THEN 40MG WKLY STARTING AT WK 3
     Route: 058
     Dates: start: 20230925
  8. ABRILADA [Suspect]
     Active Substance: ADALIMUMAB-AFZB
     Dosage: 40 MG, WEEKLY
     Route: 058
     Dates: start: 20231011
  9. ABRILADA [Suspect]
     Active Substance: ADALIMUMAB-AFZB
     Dosage: 40 MG, WEEKLY
     Route: 058
     Dates: start: 20231017
  10. ABRILADA [Suspect]
     Active Substance: ADALIMUMAB-AFZB
     Dosage: 40 MG, WEEKLY
     Route: 058
     Dates: start: 20231024
  11. ABRILADA [Suspect]
     Active Substance: ADALIMUMAB-AFZB
     Dosage: 40 MG, WEEKLY
     Route: 058
     Dates: start: 20231031
  12. ABRILADA [Suspect]
     Active Substance: ADALIMUMAB-AFZB
     Dosage: 40 MG, WEEKLY
     Route: 058
     Dates: start: 20231107
  13. ABRILADA [Suspect]
     Active Substance: ADALIMUMAB-AFZB
     Dosage: 40 MG, WEEKLY
     Route: 058
     Dates: start: 20231114
  14. ABRILADA [Suspect]
     Active Substance: ADALIMUMAB-AFZB
     Dosage: 40 MG, 2 WEEKS
     Route: 058
     Dates: start: 20231128
  15. ABRILADA [Suspect]
     Active Substance: ADALIMUMAB-AFZB
     Dosage: 40 MG, 2 WEEKS
     Route: 058
     Dates: start: 20231211
  16. ABRILADA [Suspect]
     Active Substance: ADALIMUMAB-AFZB
     Dosage: 40 MG, AFTER 2 WEEKS + 2 DAYS (1 DF)
     Route: 058
     Dates: start: 20231227
  17. ABRILADA [Suspect]
     Active Substance: ADALIMUMAB-AFZB
     Dosage: 40MG, 1 WEEKS + 6 DAYS
     Route: 058
     Dates: start: 20240109
  18. ABRILADA [Suspect]
     Active Substance: ADALIMUMAB-AFZB
     Dosage: 40MG, 8 WEEKS + 1 DAY
     Route: 058
     Dates: start: 20240306
  19. ABRILADA [Suspect]
     Active Substance: ADALIMUMAB-AFZB
     Dosage: 40 MG, 2 WEEKS
     Route: 058
     Dates: start: 20240313
  20. ABRILADA [Suspect]
     Active Substance: ADALIMUMAB-AFZB
     Dosage: 40 MG, 2 WKS
     Route: 058
     Dates: start: 20240327
  21. ABRILADA [Suspect]
     Active Substance: ADALIMUMAB-AFZB
     Dosage: 1 DF, 160MG WK 0, 80MG WK 2, THEN 40MG Q WK STARTING AT WK 3 (40 MG 2 WKS)
     Route: 058
     Dates: start: 20240410
  22. ABRILADA [Suspect]
     Active Substance: ADALIMUMAB-AFZB
     Dosage: 1 DF, 160MG WK 0, 80MG WK 2, THEN 40MG Q WK STARTING AT WK 3
     Route: 058
     Dates: start: 20240424
  23. ABRILADA [Suspect]
     Active Substance: ADALIMUMAB-AFZB
     Dosage: 1 DF, WEEKLY
     Route: 058
     Dates: start: 20240501
  24. ABRILADA [Suspect]
     Active Substance: ADALIMUMAB-AFZB
     Dosage: 1 DF,160MG WK 0,80MG WK 2,THEN 40MG Q WK AT WK 3
     Route: 058
     Dates: start: 20240508
  25. ABRILADA [Suspect]
     Active Substance: ADALIMUMAB-AFZB
     Dosage: 40 MG, 5 WEEKS AND 5 DAYS AFTER LAST TREATMENT
     Route: 058
     Dates: start: 20240618
  26. ABRILADA [Suspect]
     Active Substance: ADALIMUMAB-AFZB
     Dosage: 40 MG, 1 WEEK ( 1 DF, 160MG WEEK 0, 80MG WEEK 2, THEN 40MG EVERY WEEK STARTING AT WEEK 3)
     Route: 058
     Dates: start: 20240625
  27. ABRILADA [Suspect]
     Active Substance: ADALIMUMAB-AFZB
     Dosage: 40 MG, (1 DF, 160MG WEEK 0, 80MG WEEK 2, THEN 40MG EVERY WEEK STARTING AT WEEK 3)
     Route: 058
     Dates: start: 20240702
  28. ABRILADA [Suspect]
     Active Substance: ADALIMUMAB-AFZB
     Dosage: 40 MG, AFTER 1 WEEK (1 DF, 160MG WEEK 0, 80MG WEEK 2, THEN 40MG EVERY WEEK STARTING AT WEEK 3)
     Route: 058
     Dates: start: 20240709
  29. ABRILADA [Suspect]
     Active Substance: ADALIMUMAB-AFZB
     Dosage: 40 MG, 2 WEEKS (W0 160MG, W0 80MG, 40MG Q1 WK)
     Route: 058
     Dates: start: 20240723
  30. ABRILADA [Suspect]
     Active Substance: ADALIMUMAB-AFZB
     Dosage: 40 MG, WEEKLY
     Route: 058
     Dates: start: 2024
  31. ABRILADA [Suspect]
     Active Substance: ADALIMUMAB-AFZB
     Dosage: 40 MG, 2 WEEKS AND 3 DAYS (EVERY WEEK)
     Route: 058
     Dates: start: 20240809
  32. ABRILADA [Suspect]
     Active Substance: ADALIMUMAB-AFZB
     Dosage: 40 MG, WEEKLY(W0 160MG, W0 80MG, 40MG Q1 WEEK)
     Route: 058
     Dates: start: 20240813
  33. ABRILADA [Suspect]
     Active Substance: ADALIMUMAB-AFZB
     Dosage: 40 MG, WEEKLY,AFTER 1 WEEK,(W0 160MG, W0 80MG, 40MG Q1 WEEK )
     Route: 058
     Dates: start: 20240820
  34. ABRILADA [Suspect]
     Active Substance: ADALIMUMAB-AFZB
     Dosage: 40 MG, WEEKLY (1DF, W0 160MG, W0 80MG, 40MG Q1 WK)
     Route: 058
     Dates: start: 20240827
  35. ABRILADA [Suspect]
     Active Substance: ADALIMUMAB-AFZB
     Dosage: 40 MG, WEEKLY (1DF, W0 160MG, W0 80MG, 40MG Q1 WK)
     Route: 058
     Dates: start: 20240903
  36. AMLODIPINE [Concomitant]
     Active Substance: AMLODIPINE BESYLATE
     Dosage: 10 MG
  37. ATIVAN [Concomitant]
     Active Substance: LORAZEPAM
     Dosage: 1 MG
  38. BUTYLSCOPOLAMINE BROMIDE [Concomitant]
     Active Substance: BUTYLSCOPOLAMINE BROMIDE
     Dosage: 10 MG
  39. HYDROCHLOROTHIAZIDE [Concomitant]
     Active Substance: HYDROCHLOROTHIAZIDE
     Dosage: 25 MG
  40. HYDROMORPHONE [Concomitant]
     Active Substance: HYDROMORPHONE
     Dosage: 5 MG
  41. IMODIUM [Concomitant]
     Active Substance: LOPERAMIDE HYDROCHLORIDE
     Dosage: UNK
  42. IMURAN [Concomitant]
     Active Substance: AZATHIOPRINE
     Dosage: UNK
  43. IMURAN [Concomitant]
     Active Substance: AZATHIOPRINE
     Dosage: 50 MG
  44. IMURAN [Concomitant]
     Active Substance: AZATHIOPRINE
     Dosage: UNK
  45. KADIAN [Concomitant]
     Active Substance: MORPHINE SULFATE
     Dosage: 10 MG
  46. LAMISIL [Concomitant]
     Active Substance: TERBINAFINE HYDROCHLORIDE
     Dosage: UNK
  47. LOPERAMIDE [Concomitant]
     Active Substance: LOPERAMIDE
     Dosage: 2 MG
  48. NEXIUM I.V. [Concomitant]
     Active Substance: ESOMEPRAZOLE SODIUM
     Dosage: 40 MG
  49. PERINDOPRIL [Concomitant]
     Active Substance: PERINDOPRIL
     Dosage: 14 MG
  50. RAMIPRIL [Concomitant]
     Active Substance: RAMIPRIL
     Dosage: UNK
  51. ZOLPIDEM TARTRATE [Concomitant]
     Active Substance: ZOLPIDEM TARTRATE
     Dosage: UNK
  52. TRINTELLIX [Concomitant]
     Active Substance: VORTIOXETINE HYDROBROMIDE
     Dosage: 20 MG
  53. TYLENOL WITH CODEINE [Concomitant]
     Active Substance: ACETAMINOPHEN\CODEINE PHOSPHATE
     Dosage: UNK
  54. VALIUM [Concomitant]
     Active Substance: DIAZEPAM
     Dosage: UNK, AS NEEDED (PRN)
  55. VALTREX [Concomitant]
     Active Substance: VALACYCLOVIR HYDROCHLORIDE
     Dosage: 500 MG
  56. VITAMIN B12 [Concomitant]
     Active Substance: CYANOCOBALAMIN
     Dosage: UNK
  57. ZOPICLONE [Concomitant]
     Active Substance: ZOPICLONE
     Dosage: 7500 UG

REACTIONS (23)
  - Hypertension [Not Recovered/Not Resolved]
  - Pain [Recovering/Resolving]
  - Dehydration [Not Recovered/Not Resolved]
  - Condition aggravated [Recovering/Resolving]
  - Infection [Recovered/Resolved]
  - Urethral haemorrhage [Not Recovered/Not Resolved]
  - Anal haemorrhage [Not Recovered/Not Resolved]
  - Abdominal pain [Not Recovered/Not Resolved]
  - Hiatus hernia [Not Recovered/Not Resolved]
  - Blood pressure increased [Not Recovered/Not Resolved]
  - Arthralgia [Recovered/Resolved]
  - Aphthous ulcer [Not Recovered/Not Resolved]
  - Anal fissure [Recovered/Resolved]
  - Fistula [Recovered/Resolved]
  - Mouth ulceration [Not Recovered/Not Resolved]
  - Abscess [Recovered/Resolved]
  - Anal fissure [Recovered/Resolved]
  - Fistula [Unknown]
  - Illness [Not Recovered/Not Resolved]
  - COVID-19 [Recovered/Resolved]
  - Arthralgia [Not Recovered/Not Resolved]
  - Off label use [Unknown]
  - Inappropriate schedule of product administration [Unknown]

NARRATIVE: CASE EVENT DATE: 20230101
